FAERS Safety Report 25273026 (Version 2)
Quarter: 2025Q2

REPORT INFORMATION
  Report Type: Spontaneous
  Country: US (occurrence: US)
  Receive Date: 20250506
  Receipt Date: 20250519
  Transmission Date: 20250717
  Serious: Yes (Other)
  Sender: AUROBINDO
  Company Number: US-AUROBINDO-AUR-APL-2025-023154

PATIENT
  Age: 16 Year
  Sex: Male

DRUGS (9)
  1. CYCLOPHOSPHAMIDE [Suspect]
     Active Substance: CYCLOPHOSPHAMIDE
     Indication: Bone marrow conditioning regimen
     Route: 065
  2. VINCRISTINE [Concomitant]
     Active Substance: VINCRISTINE
     Indication: Bone marrow conditioning regimen
     Route: 065
  3. DOXORUBICIN [Concomitant]
     Active Substance: DOXORUBICIN
     Indication: Bone marrow conditioning regimen
     Route: 065
  4. DEXAMETHASONE [Concomitant]
     Active Substance: DEXAMETHASONE
     Indication: Bone marrow conditioning regimen
     Route: 065
  5. DEXAMETHASONE [Concomitant]
     Active Substance: DEXAMETHASONE
     Indication: Superior vena cava syndrome
  6. VENETOCLAX [Concomitant]
     Active Substance: VENETOCLAX
     Indication: Bone marrow conditioning regimen
     Route: 065
  7. CYTARABINE [Concomitant]
     Active Substance: CYTARABINE
     Indication: Chemotherapy
     Route: 037
  8. METHOTREXATE [Concomitant]
     Active Substance: METHOTREXATE
     Indication: Chemotherapy
     Route: 037
  9. HYDROCORTISONE [Concomitant]
     Active Substance: HYDROCORTISONE
     Indication: Chemotherapy
     Route: 037

REACTIONS (2)
  - Graft versus host disease in gastrointestinal tract [Unknown]
  - Drug ineffective [Unknown]
